FAERS Safety Report 7572095-8 (Version None)
Quarter: 2011Q2

REPORT INFORMATION
  Report Type: 
  Country: None (occurrence: None)
  Receive Date: 20110624
  Receipt Date: 20110614
  Transmission Date: 20111010
  Serious: Yes (Other)
  Sender: FDA-Public Use
  Company Number: US-AMGEN-USASP2011030524

PATIENT
  Sex: Female

DRUGS (1)
  1. ENBREL [Suspect]
     Indication: PSORIASIS
     Dosage: 50 MG, QWK
     Dates: start: 20080601, end: 20110525

REACTIONS (6)
  - NAUSEA [None]
  - NASAL CONGESTION [None]
  - PSORIASIS [None]
  - PLEURAL EFFUSION [None]
  - PYREXIA [None]
  - INFLUENZA LIKE ILLNESS [None]
